FAERS Safety Report 16112130 (Version 1)
Quarter: 2019Q1

REPORT INFORMATION
  Report Type: Report from Study
  Country: CA (occurrence: CA)
  Receive Date: 20190325
  Receipt Date: 20190325
  Transmission Date: 20190418
  Serious: Yes (Other)
  Sender: FDA-Public Use
  Company Number: CA-HLSUS-2019-CA-000310

PATIENT
  Sex: Female

DRUGS (1)
  1. CLOZARIL [Suspect]
     Active Substance: CLOZAPINE
     Route: 048
     Dates: start: 20190130, end: 20190308

REACTIONS (4)
  - Nausea [Unknown]
  - Pneumonia [Unknown]
  - Urinary tract infection [Unknown]
  - Malaise [Unknown]
